FAERS Safety Report 8932089 (Version 1)
Quarter: 2012Q4

REPORT INFORMATION
  Report Type: Report from Study
  Country: US (occurrence: US)
  Receive Date: 20121128
  Receipt Date: 20121128
  Transmission Date: 20130627
  Serious: Yes (Hospitalization)
  Sender: FDA-Public Use
  Company Number: US-009507513-1211USA008801

PATIENT
  Age: 51 Year
  Sex: Male
  Weight: 91 kg

DRUGS (14)
  1. TEMODAR [Suspect]
     Indication: GLIOBLASTOMA
     Dosage: 75 mg/m2, daily
     Route: 065
     Dates: start: 20090319
  2. BEVACIZUMAB [Suspect]
     Indication: GLIOBLASTOMA
     Dosage: 10 mg/kg, qow
     Route: 042
     Dates: start: 20090331
  3. ERLOTINIB HYDROCHLORIDE [Suspect]
     Indication: GLIOBLASTOMA
     Dosage: 150 mg, qd
     Route: 048
     Dates: start: 20090319
  4. ERLOTINIB HYDROCHLORIDE [Suspect]
     Dosage: 200 mg, qd
     Route: 048
     Dates: start: 20090402
  5. PERCOCET [Concomitant]
     Dosage: UNK
     Dates: start: 20090511
  6. CLOBEX [Concomitant]
     Dosage: UNK
     Dates: start: 20090506
  7. NEURONTIN [Concomitant]
     Dosage: UNK
     Dates: start: 20090515
  8. KEPPRA [Concomitant]
     Dosage: UNK
     Dates: start: 20090215
  9. LEXAPRO [Concomitant]
     Dosage: UNK
     Dates: start: 20090215
  10. MINOCYCLINE [Concomitant]
     Dosage: UNK
     Dates: start: 20090331
  11. VALIUM [Concomitant]
     Dosage: UNK
     Dates: start: 20090317
  12. ZOFRAN [Concomitant]
     Dosage: UNK
     Dates: start: 20090319
  13. LAMISIL (TERBINAFINE HYDROCHLORIDE) [Concomitant]
     Dosage: UNK
     Dates: start: 200904
  14. VICODIN [Concomitant]
     Dosage: UNK
     Dates: start: 20090429

REACTIONS (3)
  - Dyspnoea [Recovered/Resolved]
  - Pyrexia [Recovered/Resolved]
  - Thrombocytopenia [Recovered/Resolved]
